FAERS Safety Report 5589252-2 (Version None)
Quarter: 2008Q1

REPORT INFORMATION
  Report Type: 
  Country: None (occurrence: None)
  Receive Date: 20080114
  Receipt Date: 20080103
  Transmission Date: 20080703
  Serious: Yes (Other)
  Sender: FDA-Public Use
  Company Number: PHHY2008BR00471

PATIENT
  Age: 72 Year
  Sex: Female
  Weight: 82 kg

DRUGS (3)
  1. DIOVAN [Suspect]
     Indication: HYPERTENSION
     Dosage: 160 MG, UNK
     Route: 048
  2. DIOVAN [Suspect]
     Dosage: 80 MG
     Route: 048
     Dates: start: 20000101
  3. EXFORGE [Suspect]
     Indication: HYPERTENSION
     Dosage: 160/5MG QD
     Route: 048

REACTIONS (7)
  - BLISTER [None]
  - BLOOD PRESSURE INCREASED [None]
  - ERYTHEMA [None]
  - OEDEMA PERIPHERAL [None]
  - SCLERODERMA [None]
  - SKIN DISCOLOURATION [None]
  - WOUND [None]
